FAERS Safety Report 21391384 (Version 1)
Quarter: 2022Q3

REPORT INFORMATION
  Report Type: Spontaneous
  Country: IT (occurrence: IT)
  Receive Date: 20220929
  Receipt Date: 20220929
  Transmission Date: 20221026
  Serious: Yes (Hospitalization, Other)
  Sender: FDA-Public Use
  Company Number: None

PATIENT
  Age: 79 Year
  Sex: Female

DRUGS (13)
  1. PRAMIPEXOLE [Suspect]
     Active Substance: PRAMIPEXOLE
     Indication: Product used for unknown indication
  2. ABEMACICLIB [Suspect]
     Active Substance: ABEMACICLIB
     Indication: Product used for unknown indication
     Dosage: , CYCLE OF 28 DAYS
     Route: 048
     Dates: start: 20220422
  3. ROSUVASTATIN [Suspect]
     Active Substance: ROSUVASTATIN
     Indication: Product used for unknown indication
  4. ASPIRIN [Suspect]
     Active Substance: ASPIRIN
     Indication: Product used for unknown indication
  5. NALOXONE HYDROCHLORIDE\OXYCODONE HYDROCHLORIDE [Suspect]
     Active Substance: NALOXONE HYDROCHLORIDE\OXYCODONE HYDROCHLORIDE
     Indication: Product used for unknown indication
  6. PAROXETINE [Suspect]
     Active Substance: PAROXETINE
     Indication: Product used for unknown indication
  7. ACTOS [Suspect]
     Active Substance: PIOGLITAZONE HYDROCHLORIDE
     Indication: Product used for unknown indication
  8. METFORMIN HYDROCHLORIDE [Suspect]
     Active Substance: METFORMIN HYDROCHLORIDE
     Indication: Product used for unknown indication
  9. BISOPROLOL FUMARATE [Suspect]
     Active Substance: BISOPROLOL FUMARATE
     Indication: Product used for unknown indication
  10. URSODIOL [Suspect]
     Active Substance: URSODIOL
     Indication: Product used for unknown indication
  11. OLMESARTAN MEDOXOMIL [Suspect]
     Active Substance: OLMESARTAN MEDOXOMIL
     Indication: Product used for unknown indication
  12. LERCANIDIPINE HYDROCHLORIDE [Suspect]
     Active Substance: LERCANIDIPINE HYDROCHLORIDE
     Indication: Product used for unknown indication
  13. FASLODEX [Concomitant]
     Active Substance: FULVESTRANT
     Indication: Product used for unknown indication

REACTIONS (7)
  - Neutropenia [Recovering/Resolving]
  - Hyperpyrexia [Recovering/Resolving]
  - Asthenia [Recovering/Resolving]
  - Vomiting [Recovered/Resolved]
  - Nausea [Recovering/Resolving]
  - Renal failure [Recovering/Resolving]
  - Drug interaction [Unknown]

NARRATIVE: CASE EVENT DATE: 20220506
